FAERS Safety Report 4282060-4 (Version None)
Quarter: 2004Q1

REPORT INFORMATION
  Report Type: 
  Country: None (occurrence: None)
  Receive Date: 20040112
  Receipt Date: 20030811
  Transmission Date: 20041129
  Serious: Yes (Other)
  Sender: FDA-Public Use
  Company Number: US-JNJFOC-20030803783

PATIENT

DRUGS (3)
  1. ABCIXIMAB (ABCIXIMAB) INJECTION [Suspect]
     Indication: ARTERIAL THERAPEUTIC PROCEDURE
     Dosage: BLUS PLUS OVERNIGHT INFUSION.
  2. ASPIRIN [Concomitant]
  3. CLOPIDOGREL BISULFATE [Concomitant]

REACTIONS (1)
  - HAEMATOMA [None]
